FAERS Safety Report 15687540 (Version 2)
Quarter: 2019Q4

REPORT INFORMATION
  Report Type: Spontaneous
  Country: US (occurrence: US)
  Receive Date: 20181205
  Receipt Date: 20191018
  Transmission Date: 20200122
  Serious: No
  Sender: FDA-Public Use
  Company Number: US-ELI_LILLY_AND_COMPANY-US201811013492

PATIENT
  Sex: Female
  Weight: 99.77 kg

DRUGS (1)
  1. HUMALOG [Suspect]
     Active Substance: INSULIN LISPRO
     Indication: GESTATIONAL DIABETES
     Dosage: 20 U, DAILY
     Route: 058
     Dates: end: 20190214

REACTIONS (1)
  - Maternal exposure during pregnancy [Unknown]
